FAERS Safety Report 7517394-0 (Version None)
Quarter: 2011Q2

REPORT INFORMATION
  Report Type: 
  Country: None (occurrence: None)
  Receive Date: 20110601
  Receipt Date: 20110524
  Transmission Date: 20111010
  Serious: Yes (Death)
  Sender: FDA-Public Use
  Company Number: DK-BAXTER-2011BH017669

PATIENT
  Sex: Male

DRUGS (3)
  1. ETOPOSIDE [Suspect]
     Indication: GERM CELL CANCER
     Route: 042
  2. CISPLATIN [Suspect]
     Indication: GERM CELL CANCER
     Route: 042
  3. IFOSFAMIDE [Suspect]
     Indication: GERM CELL CANCER
     Route: 042

REACTIONS (1)
  - SEPSIS [None]
